FAERS Safety Report 13583694 (Version 1)
Quarter: 2017Q2

REPORT INFORMATION
  Report Type: Spontaneous
  Country: US (occurrence: US)
  Receive Date: 20170526
  Receipt Date: 20170526
  Transmission Date: 20170830
  Serious: Yes (Hospitalization)
  Sender: FDA-Public Use
  Company Number: US-VIFOR (INTERNATIONAL) INC.-VIT-2017-05813

PATIENT
  Sex: Female

DRUGS (16)
  1. ATORVASTATIN CALCIUM. [Concomitant]
     Active Substance: ATORVASTATIN CALCIUM
  2. PRIMIDONE. [Concomitant]
     Active Substance: PRIMIDONE
  3. SYNTHROID [Concomitant]
     Active Substance: LEVOTHYROXINE SODIUM
  4. ACETYLSALICYLIC ACID [Concomitant]
     Active Substance: ASPIRIN
  5. DIGOXIN. [Concomitant]
     Active Substance: DIGOXIN
  6. POTASSIUM CHLORIDE. [Concomitant]
     Active Substance: POTASSIUM CHLORIDE
  7. VELTASSA [Suspect]
     Active Substance: PATIROMER
     Indication: HYPERKALAEMIA
     Route: 048
     Dates: start: 20160603
  8. BUMETANIDE. [Concomitant]
     Active Substance: BUMETANIDE
  9. TRAMADOL HYDROCHLORIDE. [Concomitant]
     Active Substance: TRAMADOL HYDROCHLORIDE
  10. CARVEDILOL. [Concomitant]
     Active Substance: CARVEDILOL
  11. LORAZEPAM. [Concomitant]
     Active Substance: LORAZEPAM
  12. NEXIUM [Concomitant]
     Active Substance: ESOMEPRAZOLE MAGNESIUM
  13. NOVOLOG [Concomitant]
     Active Substance: INSULIN ASPART
  14. CYMBALTA [Concomitant]
     Active Substance: DULOXETINE HYDROCHLORIDE
  15. DILTIAZEM HYDROCHLORIDE. [Concomitant]
     Active Substance: DILTIAZEM HYDROCHLORIDE
  16. LYRICA [Concomitant]
     Active Substance: PREGABALIN

REACTIONS (2)
  - Dyspnoea [Unknown]
  - Pericardial effusion [Unknown]
